FAERS Safety Report 13999403 (Version 3)
Quarter: 2017Q4

REPORT INFORMATION
  Report Type: Spontaneous
  Country: US (occurrence: US)
  Receive Date: 20170922
  Receipt Date: 20171018
  Transmission Date: 20180321
  Serious: Yes (Other)
  Sender: FDA-Public Use
  Company Number: US-AMGEN-USASP2017141373

PATIENT
  Age: 71 Year
  Sex: Female
  Weight: 58.41 kg

DRUGS (22)
  1. OMEPRAZOLE. [Concomitant]
     Active Substance: OMEPRAZOLE
     Dosage: 20 MG, QD
  2. ESTRACE [Concomitant]
     Active Substance: ESTRADIOL
     Dosage: 0.1 MG PER GM, UNK
  3. LUTEIN [Concomitant]
     Active Substance: LUTEIN
     Dosage: 20 MG, QD
     Route: 048
  4. BIOTIN [Concomitant]
     Active Substance: BIOTIN
     Dosage: 5000 MUG, QD
  5. COENZYME Q10 [Concomitant]
     Active Substance: UBIDECARENONE
     Dosage: UNK UNK, QD
  6. BUTALBITAL APAP CAFFEINE [Concomitant]
     Indication: HEADACHE
     Dosage: UNK UNK, AS NECESSARY
     Route: 048
  7. PROLIA [Suspect]
     Active Substance: DENOSUMAB
     Indication: OSTEOPOROSIS POSTMENOPAUSAL
     Dosage: 60 MG, Q6MO
     Route: 058
     Dates: start: 20130514
  8. LEVOTHYROXINE SODIUM. [Concomitant]
     Active Substance: LEVOTHYROXINE SODIUM
     Dosage: 75 MUG, QD
  9. ASPIRIN 81 [Concomitant]
     Active Substance: ASPIRIN
     Dosage: UNK UNK, QD
  10. VITAMIN B12 [Concomitant]
     Active Substance: CYANOCOBALAMIN
     Dosage: 5000 MUG, QD
  11. CLINDAMYCIN HCL [Concomitant]
     Active Substance: CLINDAMYCIN HYDROCHLORIDE
     Dosage: 300 MG, (2 CAPS PRIOR TO DENTAL PROCEDURES), UNK
  12. QUETIAPINE FUMARATE. [Concomitant]
     Active Substance: QUETIAPINE FUMARATE
     Dosage: 25 MG, AS NECESSARY
  13. MIRALAX [Concomitant]
     Active Substance: POLYETHYLENE GLYCOL 3350
     Dosage: 1 CAPFUL, AS NECESSARY
  14. LITHIUM CARBONATE. [Concomitant]
     Active Substance: LITHIUM CARBONATE
     Dosage: 450, 1/2 TABLET, UNK
  15. LAMICTAL [Concomitant]
     Active Substance: LAMOTRIGINE
     Dosage: 2 DF(100 MG), QD
  16. DEPLIN [Concomitant]
     Active Substance: LEVOMEFOLATE CALCIUM
     Dosage: 15 MG, QD
     Route: 048
  17. CLOBETASOL PROPIONATE. [Concomitant]
     Active Substance: CLOBETASOL PROPIONATE
     Indication: PRURITUS
     Dosage: 0.05 %, UNK
  18. NITROSTAT [Concomitant]
     Active Substance: NITROGLYCERIN
     Dosage: 0.4 MG, AS NECESSARY
     Route: 060
  19. VITAMIN D3 [Concomitant]
     Active Substance: CHOLECALCIFEROL
     Dosage: 2000 UNIT, QD
     Route: 048
  20. ALPRAZOLAM. [Concomitant]
     Active Substance: ALPRAZOLAM
     Dosage: 1 MG, AS NECESSARY
  21. ATORVASTATIN CALCIUM. [Concomitant]
     Active Substance: ATORVASTATIN CALCIUM
     Dosage: 40 MG, QD
  22. DICYCLOMINE HCL HEXAL [Concomitant]
     Dosage: 10 MG, BID

REACTIONS (8)
  - Fall [Unknown]
  - Impaired healing [Not Recovered/Not Resolved]
  - Foot fracture [Recovered/Resolved]
  - Myocardial infarction [Unknown]
  - Patella fracture [Unknown]
  - Tooth disorder [Not Recovered/Not Resolved]
  - Implant site pain [Unknown]
  - Bone fragmentation [Unknown]

NARRATIVE: CASE EVENT DATE: 201406
